FAERS Safety Report 9478489 (Version 1)
Quarter: 2013Q3

REPORT INFORMATION
  Report Type: Spontaneous
  Country: US (occurrence: None)
  Receive Date: 20130822
  Receipt Date: 20130822
  Transmission Date: 20140515
  Serious: Yes (Death, Other)
  Sender: FDA-Public Use
  Company Number: 2013US001046

PATIENT
  Age: 63 Year
  Sex: Male
  Weight: 85 kg

DRUGS (3)
  1. PONATINIB [Suspect]
     Indication: CHRONIC MYELOID LEUKAEMIA
     Route: 048
     Dates: start: 20120206, end: 20120326
  2. NITROGLYCERIN (NITROGLYCERIN) [Concomitant]
  3. LASIX (FUROSEMIDE SODIUM) [Concomitant]

REACTIONS (5)
  - Cardiac failure congestive [None]
  - Renal failure [None]
  - Cardiac disorder [None]
  - Myocardial infarction [None]
  - Condition aggravated [None]
